FAERS Safety Report 5120493-4 (Version None)
Quarter: 2006Q4

REPORT INFORMATION
  Report Type: 
  Country: None (occurrence: None)
  Receive Date: 20061004
  Receipt Date: 20060327
  Transmission Date: 20070319
  Serious: Yes (Death)
  Sender: FDA-Public Use
  Company Number: GB-SANOFI-SYNTHELABO-A01200602413

PATIENT
  Age: 66 Year
  Sex: Male
  Weight: 80.1 kg

DRUGS (2)
  1. ASPIRIN [Concomitant]
     Dosage: UNK
     Route: 048
  2. OXALIPLATIN [Suspect]
     Route: 042
     Dates: start: 20060306, end: 20060306

REACTIONS (7)
  - DISEASE PROGRESSION [None]
  - DYSPNOEA [None]
  - FACIAL PALSY [None]
  - LARYNGOSPASM [None]
  - NAUSEA [None]
  - RECTAL HAEMORRHAGE [None]
  - WHEEZING [None]
